FAERS Safety Report 8923026 (Version 2)
Quarter: 2013Q1

REPORT INFORMATION
  Report Type: Spontaneous
  Country: US (occurrence: None)
  Receive Date: 20121115
  Receipt Date: 20130118
  Transmission Date: 20140127
  Serious: Yes (Other)
  Sender: FDA-Public Use
  Company Number: IMP_06079_2012

PATIENT
  Age: 23 Year
  Sex: Female

DRUGS (2)
  1. MINOCYCLINE [Suspect]
     Indication: ACNE
     Dosage: (DF)  (UNKNOWN)
  2. DOXYCYCLINE [Concomitant]

REACTIONS (3)
  - Pupillary reflex impaired [None]
  - Papilloedema [None]
  - Benign intracranial hypertension [None]
